FAERS Safety Report 5576008-X (Version None)
Quarter: 2007Q4

REPORT INFORMATION
  Report Type: 
  Country: None (occurrence: None)
  Receive Date: 20071228
  Receipt Date: 20071226
  Transmission Date: 20080405
  Serious: Yes (Life-Threatening, Hospitalization)
  Sender: FDA-Public Use
  Company Number: PHBS2007TR21385

PATIENT

DRUGS (2)
  1. CELLCEPT [Concomitant]
     Indication: RENAL TRANSPLANT
  2. SANDIMMUNE [Suspect]
     Indication: RENAL TRANSPLANT
     Route: 048

REACTIONS (12)
  - BRAIN OEDEMA [None]
  - CENTRAL NERVOUS SYSTEM NECROSIS [None]
  - COMA [None]
  - COMPLICATIONS OF TRANSPLANTED KIDNEY [None]
  - HEADACHE [None]
  - HYDROCEPHALUS [None]
  - INCORRECT DOSE ADMINISTERED [None]
  - INFLAMMATION [None]
  - INTUBATION [None]
  - RENAL IMPAIRMENT [None]
  - RENAL TUBULAR NECROSIS [None]
  - SURGICAL VASCULAR SHUNT [None]
